FAERS Safety Report 10044442 (Version 3)
Quarter: 2014Q2

REPORT INFORMATION
  Report Type: Report from Study
  Country: DE (occurrence: DE)
  Receive Date: 20140328
  Receipt Date: 20140421
  Transmission Date: 20141212
  Serious: Yes (Hospitalization)
  Sender: FDA-Public Use
  Company Number: DE-ABBVIE-14P-062-1215365-00

PATIENT
  Age: 58 Year
  Sex: Male
  Weight: 66.5 kg

DRUGS (17)
  1. HUMIRA [Suspect]
     Indication: RHEUMATOID ARTHRITIS
     Route: 058
     Dates: start: 20130923, end: 20140216
  2. HUMIRA [Suspect]
     Route: 058
     Dates: start: 20140317
  3. PREDNISOLONE [Concomitant]
     Indication: PRODUCT USED FOR UNKNOWN INDICATION
     Dates: end: 201401
  4. METHOTREXATE [Concomitant]
     Indication: RHEUMATOID ARTHRITIS
     Route: 048
     Dates: start: 20100305
  5. FOLIC ACID [Concomitant]
     Indication: PRODUCT USED FOR UNKNOWN INDICATION
     Route: 048
     Dates: start: 20100305
  6. GODAMED [Concomitant]
     Indication: CEREBROVASCULAR ACCIDENT
     Route: 048
     Dates: start: 201101
  7. URBASON [Concomitant]
     Indication: PRODUCT USED FOR UNKNOWN INDICATION
  8. IBUPROFEN [Concomitant]
     Indication: PRODUCT USED FOR UNKNOWN INDICATION
  9. OTRIVEN [Concomitant]
     Indication: PRODUCT USED FOR UNKNOWN INDICATION
  10. FLUTICA [Concomitant]
     Indication: PRODUCT USED FOR UNKNOWN INDICATION
  11. AVAMYS [Concomitant]
     Indication: PRODUCT USED FOR UNKNOWN INDICATION
  12. SYMPHYTUM [Concomitant]
     Indication: PRODUCT USED FOR UNKNOWN INDICATION
  13. ARNICA [Concomitant]
     Indication: PRODUCT USED FOR UNKNOWN INDICATION
  14. VIGANTOLETTEN [Concomitant]
     Indication: PRODUCT USED FOR UNKNOWN INDICATION
     Dates: start: 201103
  15. DELIX [Concomitant]
     Indication: PRODUCT USED FOR UNKNOWN INDICATION
     Dates: start: 201102
  16. SIMVASTATINE [Concomitant]
     Indication: PRODUCT USED FOR UNKNOWN INDICATION
     Dates: start: 201102
  17. PANTOPRAZOLE [Concomitant]
     Indication: PRODUCT USED FOR UNKNOWN INDICATION
     Dates: start: 201103

REACTIONS (3)
  - Nasal septum deviation [Recovered/Resolved]
  - Nasal polyps [Recovered/Resolved]
  - Chronic sinusitis [Unknown]
